FAERS Safety Report 5675229-5 (Version None)
Quarter: 2008Q2

REPORT INFORMATION
  Report Type: 
  Country: None (occurrence: None)
  Receive Date: 20080307
  Receipt Date: 20070524
  Transmission Date: 20081010
  Serious: Yes (Other)
  Sender: FDA-Public Use
  Company Number: T200700595

PATIENT
  Age: 58 Year
  Sex: Female

DRUGS (1)
  1. OPTIRAY 300 [Suspect]
     Indication: COMPUTERISED TOMOGRAM
     Dosage: 85 ML, SINGLE, INTRAVENOUS
     Route: 042
     Dates: start: 20070521, end: 20070521

REACTIONS (3)
  - PALPITATIONS [None]
  - THROAT IRRITATION [None]
  - THROAT TIGHTNESS [None]
